FAERS Safety Report 23420066 (Version 1)
Quarter: 2024Q1

REPORT INFORMATION
  Report Type: Spontaneous
  Country: CA (occurrence: CA)
  Receive Date: 20240119
  Receipt Date: 20240119
  Transmission Date: 20240409
  Serious: Yes (Other)
  Sender: FDA-Public Use
  Company Number: CA-SA-SAC20240112001581

PATIENT
  Age: 23 Year
  Sex: Female

DRUGS (2)
  1. TUBERSOL [Suspect]
     Active Substance: TUBERCULIN PURIFIED PROTEIN DERIVATIVE
     Indication: Tuberculin test
     Dosage: 5 U, QD
     Route: 023
  2. CITALOPRAM [Suspect]
     Active Substance: CITALOPRAM HYDROBROMIDE
     Dosage: UNK UNK, TOTAL

REACTIONS (8)
  - Chest discomfort [Unknown]
  - Dysphagia [Unknown]
  - Lip pruritus [Unknown]
  - Oral pruritus [Unknown]
  - Throat tightness [Unknown]
  - Tachycardia [Unknown]
  - Nausea [Unknown]
  - Anaphylactic reaction [Unknown]
